FAERS Safety Report 19205297 (Version 1)
Quarter: 2021Q2

REPORT INFORMATION
  Report Type: Spontaneous
  Country: US (occurrence: US)
  Receive Date: 20210502
  Receipt Date: 20210502
  Transmission Date: 20210717
  Serious: Yes (Life-Threatening, Hospitalization)
  Sender: FDA-Public Use
  Company Number: None

PATIENT
  Age: 30 Year
  Sex: Male
  Weight: 67.5 kg

DRUGS (2)
  1. MELOXICAM. [Suspect]
     Active Substance: MELOXICAM
  2. CIPRO [Suspect]
     Active Substance: CIPROFLOXACIN HYDROCHLORIDE
     Indication: EPIDIDYMITIS
     Route: 048
     Dates: start: 20210414, end: 20210415

REACTIONS (11)
  - Chills [None]
  - Ear discomfort [None]
  - Depersonalisation/derealisation disorder [None]
  - Insomnia [None]
  - Hallucination, auditory [None]
  - Tinnitus [None]
  - Anxiety [None]
  - Neck pain [None]
  - Tremor [None]
  - Muscular weakness [None]
  - Feeling abnormal [None]

NARRATIVE: CASE EVENT DATE: 20210416
